FAERS Safety Report 9189232 (Version 1)
Quarter: 2013Q1

REPORT INFORMATION
  Report Type: Spontaneous
  Country: DE (occurrence: None)
  Receive Date: 20130322
  Receipt Date: 20130322
  Transmission Date: 20140127
  Serious: Yes (Death)
  Sender: FDA-Public Use
  Company Number: 2013-031896

PATIENT
  Sex: Male

DRUGS (1)
  1. EYLEA (AFLIBERCEPT) SOLUTION FOR INJECTION [Suspect]
     Indication: MACULAR DEGENERATION

REACTIONS (1)
  - Myocardial infarction [None]
